FAERS Safety Report 17394677 (Version 2)
Quarter: 2020Q1

REPORT INFORMATION
  Report Type: Report from Study
  Country: None (occurrence: CO)
  Receive Date: 20200210
  Receipt Date: 20200311
  Transmission Date: 20200409
  Serious: Yes (Other)
  Sender: FDA-Public Use
  Company Number: CO-ABBVIE-20K-036-3267712-00

PATIENT
  Age: 63 Year
  Sex: Female
  Weight: 58 kg

DRUGS (2)
  1. HUMIRA [Suspect]
     Active Substance: ADALIMUMAB
     Indication: RHEUMATOID ARTHRITIS
     Route: 058
     Dates: start: 20150909
  2. HUMIRA [Suspect]
     Active Substance: ADALIMUMAB
     Indication: RHEUMATOID ARTHRITIS
     Route: 058
     Dates: end: 20200109

REACTIONS (9)
  - Impaired healing [Unknown]
  - Foot deformity [Recovering/Resolving]
  - Skin exfoliation [Unknown]
  - Accident [Recovering/Resolving]
  - Procedural vomiting [Recovering/Resolving]
  - Scar [Unknown]
  - Limb injury [Recovering/Resolving]
  - Procedural headache [Recovering/Resolving]
  - Procedural dizziness [Recovering/Resolving]

NARRATIVE: CASE EVENT DATE: 2019
